FAERS Safety Report 5564483-6 (Version None)
Quarter: 2007Q4

REPORT INFORMATION
  Report Type: 
  Country: None (occurrence: None)
  Receive Date: 20071212
  Receipt Date: 20071204
  Transmission Date: 20080405
  Serious: Yes (Hospitalization)
  Sender: FDA-Public Use
  Company Number: 056-21880-07120210

PATIENT
  Sex: Female

DRUGS (2)
  1. REVLIMID [Suspect]
     Indication: LIGHT CHAIN DISEASE
     Dosage: 25 MG, DAILY, ORAL
     Route: 048
     Dates: start: 20071116
  2. DEXAMETHASONE (DEXAETHASONE) [Concomitant]

REACTIONS (4)
  - ARTHRALGIA [None]
  - CARDIAC AMYLOIDOSIS [None]
  - DIZZINESS [None]
  - RASH [None]
